FAERS Safety Report 6422848-4 (Version None)
Quarter: 2009Q4

REPORT INFORMATION
  Report Type: 
  Country: None (occurrence: None)
  Receive Date: 20091102
  Receipt Date: 20091021
  Transmission Date: 20100525
  Serious: Yes (Other)
  Sender: FDA-Public Use
  Company Number: DE-AMGEN-US361752

PATIENT
  Age: 55 Year
  Sex: Female

DRUGS (1)
  1. ENBREL [Suspect]
     Indication: RHEUMATOID ARTHRITIS
     Route: 058
     Dates: start: 20090312, end: 20090901

REACTIONS (5)
  - COUGH [None]
  - JOINT SWELLING [None]
  - OSTEONECROSIS [None]
  - RASH MACULAR [None]
  - RETCHING [None]
